FAERS Safety Report 23218842 (Version 1)
Quarter: 2023Q4

REPORT INFORMATION
  Report Type: Spontaneous
  Country: JP (occurrence: JP)
  Receive Date: 20231122
  Receipt Date: 20231122
  Transmission Date: 20240109
  Serious: Yes (Other)
  Sender: FDA-Public Use
  Company Number: JP-BIAL-BIAL-15718

PATIENT
  Age: 9 Decade

DRUGS (1)
  1. ONGENTYS [Suspect]
     Active Substance: OPICAPONE
     Indication: Parkinson^s disease
     Dosage: 25 MILLIGRAM, UNKNOWN
     Route: 048
     Dates: start: 202309, end: 202310

REACTIONS (1)
  - Delirium [Unknown]

NARRATIVE: CASE EVENT DATE: 20231001
